FAERS Safety Report 10884112 (Version 1)
Quarter: 2015Q1

REPORT INFORMATION
  Report Type: Spontaneous
  Country: US (occurrence: US)
  Receive Date: 20150304
  Receipt Date: 20150304
  Transmission Date: 20150721
  Serious: Yes (Hospitalization)
  Sender: FDA-Public Use
  Company Number: US-BIOGENIDEC-2015BI026903

PATIENT
  Age: 62 Year
  Sex: Female

DRUGS (1)
  1. TECFIDERA [Suspect]
     Active Substance: DIMETHYL FUMARATE
     Indication: MULTIPLE SCLEROSIS
     Route: 048

REACTIONS (4)
  - Seizure [Not Recovered/Not Resolved]
  - Balance disorder [Not Recovered/Not Resolved]
  - Memory impairment [Not Recovered/Not Resolved]
  - Type 1 diabetes mellitus [Not Recovered/Not Resolved]

NARRATIVE: CASE EVENT DATE: 20141229
